FAERS Safety Report 5748753-4 (Version None)
Quarter: 2008Q2

REPORT INFORMATION
  Report Type: 
  Country: None (occurrence: None)
  Receive Date: 20080522
  Receipt Date: 20080505
  Transmission Date: 20081010
  Serious: Yes (Hospitalization)
  Sender: FDA-Public Use
  Company Number: 2008AL003397

PATIENT
  Age: 43 Year
  Sex: Male
  Weight: 125.6464 kg

DRUGS (5)
  1. DIGOXIN [Suspect]
     Indication: ARRHYTHMIA
     Dosage: 0.25 MG, DAILY, ORALLY
     Route: 048
     Dates: start: 20080421
  2. LOPRESSOR [Concomitant]
  3. ALDACTONE [Concomitant]
  4. HYDRALAZINE HCL [Concomitant]
  5. CARDIAZEM [Concomitant]

REACTIONS (8)
  - ANOREXIA [None]
  - BALANCE DISORDER [None]
  - BLOOD PRESSURE INCREASED [None]
  - CHEST DISCOMFORT [None]
  - DIZZINESS [None]
  - INSOMNIA [None]
  - NAUSEA [None]
  - VOMITING [None]
